FAERS Safety Report 12636193 (Version 1)
Quarter: 2016Q3

REPORT INFORMATION
  Report Type: Spontaneous
  Country: SG (occurrence: SG)
  Receive Date: 20160809
  Receipt Date: 20160809
  Transmission Date: 20161109
  Serious: No
  Sender: FDA-Public Use
  Company Number: SG-GLENMARK PHARMACEUTICALS INC, USA.-2015GMK017914

PATIENT
  Age: 54 Year
  Sex: Female

DRUGS (3)
  1. DOXYCYCLINE. [Suspect]
     Active Substance: DOXYCYCLINE
     Indication: ERYTHEMA ANNULARE
     Dosage: 100 MG, BID
     Route: 048
  2. MOMAETASONE FUROATE/FUSIDIC ACID [Suspect]
     Active Substance: FUSIDIC ACID\MOMETASONE FUROATE
     Indication: ERYTHEMA ANNULARE
     Dosage: UNK, BID
     Route: 061
  3. BETAMETHASONE. [Suspect]
     Active Substance: BETAMETHASONE
     Indication: ERYTHEMA ANNULARE
     Dosage: UNK, BID
     Route: 061

REACTIONS (2)
  - Therapeutic response unexpected [Unknown]
  - Off label use [Unknown]
